FAERS Safety Report 17578137 (Version 1)
Quarter: 2020Q1

REPORT INFORMATION
  Report Type: Spontaneous
  Country: AU (occurrence: AU)
  Receive Date: 20200324
  Receipt Date: 20200324
  Transmission Date: 20200409
  Serious: Yes (Hospitalization)
  Sender: FDA-Public Use
  Company Number: AU-PERRIGO-20AU003898

PATIENT
  Age: 3 Year
  Sex: Female
  Weight: 15.4 kg

DRUGS (1)
  1. PARACETAMOL [Suspect]
     Active Substance: ACETAMINOPHEN
     Indication: ACCIDENTAL OVERDOSE
     Dosage: 3.6 G, SINGLE
     Route: 048

REACTIONS (2)
  - Accidental overdose [Recovered/Resolved]
  - Hepatotoxicity [Recovered/Resolved]
